FAERS Safety Report 9805585 (Version 1)
Quarter: 2014Q1

REPORT INFORMATION
  Report Type: Spontaneous
  Country: US (occurrence: None)
  Receive Date: 20140107
  Receipt Date: 20140107
  Transmission Date: 20141002
  Serious: Yes (Death)
  Sender: FDA-Public Use
  Company Number: KAD201312-001800

PATIENT
  Sex: 0

DRUGS (1)
  1. TOPOTECAN [Suspect]
     Indication: NEOPLASM MALIGNANT

REACTIONS (1)
  - Malignant neoplasm progression [None]
